FAERS Safety Report 18437328 (Version 2)
Quarter: 2021Q1

REPORT INFORMATION
  Report Type: Spontaneous
  Country: US (occurrence: US)
  Receive Date: 20201028
  Receipt Date: 20210131
  Transmission Date: 20210419
  Serious: Yes (Death, Disabling, Other)
  Sender: FDA-Public Use
  Company Number: US-PURDUE-USA-2020-0172621

PATIENT
  Age: 26 Year
  Sex: Male

DRUGS (2)
  1. HEROIN [Suspect]
     Active Substance: DIAMORPHINE
     Indication: PRODUCT USED FOR UNKNOWN INDICATION
     Dosage: UNK
     Route: 065
  2. OXYCONTIN [Suspect]
     Active Substance: OXYCODONE HYDROCHLORIDE
     Indication: PRODUCT USED FOR UNKNOWN INDICATION
     Dosage: UNK
     Route: 048

REACTIONS (9)
  - Heart injury [Unknown]
  - Traumatic lung injury [Unknown]
  - Drug abuse [Unknown]
  - Cardiac disorder [Unknown]
  - Drug dependence [Unknown]
  - Illness [Unknown]
  - Septic shock [Fatal]
  - Hypotension [Fatal]
  - Endocarditis staphylococcal [Fatal]

NARRATIVE: CASE EVENT DATE: 20160915
